FAERS Safety Report 7250309-1 (Version None)
Quarter: 2011Q1

REPORT INFORMATION
  Report Type: 
  Country: None (occurrence: None)
  Receive Date: 20110128
  Receipt Date: 20110124
  Transmission Date: 20110831
  Serious: Yes (Other)
  Sender: FDA-Public Use
  Company Number: US-AMGEN-KDC425922

PATIENT
  Age: 24 Year
  Sex: Male

DRUGS (2)
  1. OSCAL                              /00108001/ [Concomitant]
     Dosage: UNK UNK, QD
     Route: 048
     Dates: start: 20080911
  2. DENOSUMAB [Suspect]
     Indication: BONE GIANT CELL TUMOUR
     Dosage: UNK UNK, UNK
     Dates: start: 20080911, end: 20100524

REACTIONS (1)
  - OSTEONECROSIS OF JAW [None]
